FAERS Safety Report 7552635-5 (Version None)
Quarter: 2011Q2

REPORT INFORMATION
  Report Type: 
  Country: None (occurrence: None)
  Receive Date: 20110616
  Receipt Date: 20110601
  Transmission Date: 20111010
  Serious: Yes (Other)
  Sender: FDA-Public Use
  Company Number: GR-JNJFOC-20110601547

PATIENT
  Age: 12 Year
  Sex: Female

DRUGS (4)
  1. REMICADE [Suspect]
     Route: 042
     Dates: start: 20110101
  2. DEPON [Concomitant]
     Indication: PREMEDICATION
  3. REMICADE [Suspect]
     Indication: COLITIS
     Route: 042
     Dates: start: 20101202, end: 20110101
  4. HYDROCORTISONE [Concomitant]
     Indication: PREMEDICATION

REACTIONS (4)
  - WHITE BLOOD CELL COUNT DECREASED [None]
  - COLITIS [None]
  - LEUKOPENIA [None]
  - NEUTROPENIA [None]
